FAERS Safety Report 9310220 (Version 2)
Quarter: 2013Q3

REPORT INFORMATION
  Report Type: Spontaneous
  Country: ES (occurrence: ES)
  Receive Date: 20130527
  Receipt Date: 20130708
  Transmission Date: 20140515
  Serious: Yes (Other)
  Sender: FDA-Public Use
  Company Number: PHHY2013ES050882

PATIENT
  Age: 56 Year
  Sex: Female

DRUGS (2)
  1. GILENYA [Suspect]
     Indication: MULTIPLE SCLEROSIS
     Dosage: 0.5 MG, QD
     Route: 048
     Dates: start: 20110829
  2. SIMVASTATIN [Concomitant]
     Indication: DYSLIPIDAEMIA
     Dosage: UNK

REACTIONS (2)
  - Maculopathy [Unknown]
  - Metamorphopsia [Recovered/Resolved]
